FAERS Safety Report 23504032 (Version 2)
Quarter: 2024Q1

REPORT INFORMATION
  Report Type: Report from Study
  Country: US (occurrence: US)
  Receive Date: 20240209
  Receipt Date: 20240214
  Transmission Date: 20240409
  Serious: Yes (Other)
  Sender: FDA-Public Use
  Company Number: US-SUN PHARMACEUTICAL INDUSTRIES LTD-2024R1-430615

PATIENT
  Age: 27 Year

DRUGS (1)
  1. ISOTRETINOIN [Suspect]
     Active Substance: ISOTRETINOIN
     Indication: Product used for unknown indication
     Dosage: 60 MILLIGRAM, DAILY
     Route: 065
     Dates: start: 20231111, end: 20231215

REACTIONS (6)
  - Hepatic enzyme increased [Recovering/Resolving]
  - Abdominal pain upper [Unknown]
  - Muscle spasms [Unknown]
  - Chest pain [Unknown]
  - Dyspepsia [Unknown]
  - Discomfort [Unknown]

NARRATIVE: CASE EVENT DATE: 20231213
